FAERS Safety Report 7304811-4 (Version None)
Quarter: 2011Q1

REPORT INFORMATION
  Report Type: 
  Country: None (occurrence: None)
  Receive Date: 20110222
  Receipt Date: 20110217
  Transmission Date: 20110831
  Serious: No
  Sender: FDA-Public Use
  Company Number: US-PFIZER INC-2011035824

PATIENT
  Sex: Female
  Weight: 24.943 kg

DRUGS (1)
  1. ADVIL [Suspect]
     Indication: PYREXIA
     Dosage: UNK, 1X/DAY
     Route: 048
     Dates: start: 20110217, end: 20110217

REACTIONS (2)
  - INCORRECT DOSE ADMINISTERED [None]
  - DIZZINESS [None]
